FAERS Safety Report 25680317 (Version 1)
Quarter: 2025Q3

REPORT INFORMATION
  Report Type: Spontaneous
  Country: EU (occurrence: EU)
  Receive Date: 20250814
  Receipt Date: 20250814
  Transmission Date: 20251020
  Serious: Yes (Other)
  Sender: AUROBINDO
  Company Number: EU-EMA-20170316-faizanevprod-111256759

PATIENT
  Sex: Female

DRUGS (2)
  1. MYCOPHENOLATE MOFETIL [Suspect]
     Active Substance: MYCOPHENOLATE MOFETIL
     Indication: Immunosuppressant drug therapy
     Route: 065
  2. CYCLOSPORINE [Suspect]
     Active Substance: CYCLOSPORINE
     Indication: Immunosuppressant drug therapy
     Route: 065

REACTIONS (5)
  - Intestinal mass [Recovered/Resolved]
  - Rectal haemorrhage [Recovered/Resolved]
  - Haemorrhoids [Recovered/Resolved]
  - Anorectal disorder [Recovered/Resolved]
  - Xanthoma [Recovered/Resolved]
